FAERS Safety Report 13373582 (Version 1)
Quarter: 2017Q1

REPORT INFORMATION
  Report Type: Spontaneous
  Country: US (occurrence: US)
  Receive Date: 20170325
  Receipt Date: 20170325
  Transmission Date: 20170429
  Serious: No
  Sender: FDA-Public Use
  Company Number: None

PATIENT
  Sex: Male

DRUGS (1)
  1. HUMIRA [Suspect]
     Active Substance: ADALIMUMAB
     Indication: PRODUCT USED FOR UNKNOWN INDICATION
     Dosage: 40MG EVERY 2 WEEKS SQ
     Route: 058
     Dates: start: 20160909

REACTIONS (5)
  - Eye pain [None]
  - Vision blurred [None]
  - Eye infection [None]
  - Eye swelling [None]
  - Blindness unilateral [None]
